FAERS Safety Report 12835580 (Version 2)
Quarter: 2016Q4

REPORT INFORMATION
  Report Type: Spontaneous
  Country: CA (occurrence: CA)
  Receive Date: 20161011
  Receipt Date: 20161121
  Transmission Date: 20170207
  Serious: Yes (Life-Threatening, Hospitalization, Other)
  Sender: FDA-Public Use
  Company Number: CA-NAPPMUNDI-CAN-2016-0007070

PATIENT
  Age: 58 Year
  Sex: Male
  Weight: 81.5 kg

DRUGS (1)
  1. DILAUDID [Suspect]
     Active Substance: HYDROMORPHONE HYDROCHLORIDE
     Indication: PAIN PROPHYLAXIS
     Dosage: 2 - 4 MG Q3H PRN
     Route: 048
     Dates: start: 20160913, end: 20160922

REACTIONS (4)
  - Headache [Unknown]
  - Confusional state [Recovered/Resolved]
  - Drug effect variable [Recovered/Resolved]
  - Insomnia [Recovered/Resolved]

NARRATIVE: CASE EVENT DATE: 20160920
